FAERS Safety Report 18291867 (Version 1)
Quarter: 2020Q3

REPORT INFORMATION
  Report Type: Spontaneous
  Country: US (occurrence: US)
  Receive Date: 20200921
  Receipt Date: 20200921
  Transmission Date: 20201103
  Serious: No
  Sender: FDA-Public Use
  Company Number: US-009507513-2009USA001768

PATIENT
  Sex: Female

DRUGS (1)
  1. NEXPLANON [Suspect]
     Active Substance: ETONOGESTREL
     Indication: CONTRACEPTION
     Dosage: 1 IMPLANT
     Route: 059
     Dates: start: 2014

REACTIONS (7)
  - Vaginal discharge [Not Recovered/Not Resolved]
  - Menstruation normal [Unknown]
  - Menstruation normal [Not Recovered/Not Resolved]
  - Menstruation normal [Unknown]
  - Incorrect product administration duration [Unknown]
  - Inappropriate schedule of product administration [Unknown]
  - Hypomenorrhoea [Not Recovered/Not Resolved]

NARRATIVE: CASE EVENT DATE: 2014
